FAERS Safety Report 12869349 (Version 5)
Quarter: 2017Q2

REPORT INFORMATION
  Report Type: Report from Study
  Country: US (occurrence: US)
  Receive Date: 20161021
  Receipt Date: 20170406
  Transmission Date: 20170830
  Serious: Yes (Other)
  Sender: FDA-Public Use
  Company Number: PHEH2016US026708

PATIENT
  Sex: Female

DRUGS (1)
  1. COSENTYX [Suspect]
     Active Substance: SECUKINUMAB
     Indication: PSORIASIS
     Dosage: 300 MG, QW
     Route: 058
     Dates: start: 20160706

REACTIONS (6)
  - Neck pain [Unknown]
  - Arthropod bite [Unknown]
  - Arthralgia [Unknown]
  - Lyme disease [Unknown]
  - Upper-airway cough syndrome [Unknown]
  - Malaise [Unknown]
